FAERS Safety Report 6721707-7 (Version None)
Quarter: 2010Q2

REPORT INFORMATION
  Report Type: 
  Country: None (occurrence: None)
  Receive Date: 20100512
  Receipt Date: 20100504
  Transmission Date: 20101027
  Serious: Yes (Hospitalization)
  Sender: FDA-Public Use
  Company Number: CH-ASTRAZENECA-2010SE20824

PATIENT
  Age: 53 Year
  Sex: Male

DRUGS (4)
  1. SEROQUEL XR [Interacting]
     Route: 048
     Dates: start: 20090912
  2. DEPAKENE [Suspect]
     Route: 048
     Dates: start: 20090912, end: 20100203
  3. DEPAKENE [Suspect]
     Route: 048
     Dates: start: 20100204
  4. ABILIFY [Interacting]
     Route: 048
     Dates: start: 20091201, end: 20100201

REACTIONS (2)
  - DRUG INTERACTION [None]
  - PARKINSONISM [None]
